FAERS Safety Report 5255621-3 (Version None)
Quarter: 2007Q1

REPORT INFORMATION
  Report Type: 
  Country: None (occurrence: None)
  Receive Date: 20061201
  Receipt Date: 20061020
  Transmission Date: 20070707
  Serious: No
  Sender: FDA-Public Use
  Company Number: 2006MP001143

PATIENT
  Age: 79 Year
  Sex: Male

DRUGS (6)
  1. DACOGEN [Suspect]
     Indication: MYELODYSPLASTIC SYNDROME
     Dosage: QD
     Dates: start: 20060821
  2. DACOGEN [Suspect]
     Indication: MYELODYSPLASTIC SYNDROME
     Dosage: QD
     Dates: start: 20060914
  3. NEULASTA [Concomitant]
  4. TOPROL-XL [Concomitant]
  5. LEVOTHYROXINE SODIUM [Concomitant]
  6. ARANESP [Concomitant]

REACTIONS (2)
  - BONE MARROW FAILURE [None]
  - OFF LABEL USE [None]
